FAERS Safety Report 21018396 (Version 3)
Quarter: 2022Q3

REPORT INFORMATION
  Report Type: Spontaneous
  Country: JP (occurrence: JP)
  Receive Date: 20220628
  Receipt Date: 20220711
  Transmission Date: 20221026
  Serious: Yes (Other)
  Sender: FDA-Public Use
  Company Number: JP-OTSUKA-2022_032958

PATIENT
  Age: 101 Year
  Sex: Female
  Weight: 60 kg

DRUGS (5)
  1. SAMSCA [Suspect]
     Active Substance: TOLVAPTAN
     Indication: Cardiac failure
     Dosage: UNK
     Route: 048
     Dates: start: 202205
  2. SAMSCA [Suspect]
     Active Substance: TOLVAPTAN
     Indication: Oedema
     Dosage: THE DOSAGE WAS LIKELY TO BE 7.5MG X 6 TABLETS, TOTALLY 45 MG/DAY
     Route: 048
  3. SAMSCA [Suspect]
     Active Substance: TOLVAPTAN
     Dosage: THE DOSE WAS DECREASED TO 2 TABLETS (15 MG)
     Route: 048
  4. FUROSEMIDE [Concomitant]
     Active Substance: FUROSEMIDE
     Indication: Product used for unknown indication
     Dosage: 80MG/DAY
     Route: 065
  5. TORSEMIDE [Concomitant]
     Active Substance: TORSEMIDE
     Indication: Product used for unknown indication
     Dosage: UNK
     Route: 065

REACTIONS (2)
  - Renal impairment [Unknown]
  - Overdose [Unknown]
